FAERS Safety Report 10191705 (Version 1)
Quarter: 2014Q2

REPORT INFORMATION
  Report Type: Report from Study
  Country: US (occurrence: US)
  Receive Date: 20140523
  Receipt Date: 20140523
  Transmission Date: 20141212
  Serious: Yes (Other)
  Sender: FDA-Public Use
  Company Number: US-SA-2014SA066063

PATIENT
  Sex: 0

DRUGS (2)
  1. ENOXAPARIN SODIUM [Suspect]
     Indication: THROMBOSIS
     Route: 065
  2. ANTITHROMBIN III [Suspect]
     Indication: THROMBOSIS
     Route: 065

REACTIONS (1)
  - Subdural haemorrhage [Unknown]
